FAERS Safety Report 6707012-3 (Version None)
Quarter: 2010Q2

REPORT INFORMATION
  Report Type: 
  Country: None (occurrence: None)
  Receive Date: 20100430
  Receipt Date: 20100430
  Transmission Date: 20101027
  Serious: Yes (Disabling, Other)
  Sender: FDA-Public Use
  Company Number: None

PATIENT
  Age: 55 Year
  Sex: Male
  Weight: 102.0593 kg

DRUGS (2)
  1. MICARDIS [Suspect]
     Indication: BLOOD PRESSURE INCREASED
     Dates: start: 20100110, end: 20100210
  2. MICARDIS [Concomitant]

REACTIONS (5)
  - HEARING IMPAIRED [None]
  - JOINT RANGE OF MOTION DECREASED [None]
  - NEUROMYOPATHY [None]
  - PAIN IN EXTREMITY [None]
  - SKIN DISCOLOURATION [None]
